FAERS Safety Report 25751358 (Version 3)
Quarter: 2025Q4

REPORT INFORMATION
  Report Type: Spontaneous
  Country: CA (occurrence: CA)
  Receive Date: 20250902
  Receipt Date: 20251008
  Transmission Date: 20260118
  Serious: Yes (Hospitalization, Other)
  Sender: CELLTRION
  Company Number: CA-CELLTRION INC.-2025CA030951

PATIENT

DRUGS (8)
  1. INFLIXIMAB [Suspect]
     Active Substance: INFLIXIMAB
     Indication: Colitis ulcerative
     Dosage: 330 MG (5MG/KG) WEEK 0/5 MG/KG EVERY 8 WEEKS
     Route: 042
     Dates: start: 20250422
  2. INFLIXIMAB [Suspect]
     Active Substance: INFLIXIMAB
     Dosage: 330 MG (5MG/KG) WEEK 2
     Route: 042
     Dates: start: 20250506
  3. INFLIXIMAB [Suspect]
     Active Substance: INFLIXIMAB
     Dosage: 330 MG (5MG/KG) WEEK 6
     Route: 042
     Dates: start: 20250612
  4. INFLIXIMAB [Suspect]
     Active Substance: INFLIXIMAB
     Dosage: 330 MG EVERY 8 WEEKS (MAINTENANCE)
     Route: 042
     Dates: start: 20250806
  5. INFLIXIMAB [Suspect]
     Active Substance: INFLIXIMAB
     Dosage: 10 MG/KG DOSE YESTERDAY (26 AUGUST )/.LAST DOSE WAS 26-AUG-2025
     Route: 042
     Dates: start: 20250826
  6. INFLIXIMAB [Suspect]
     Active Substance: INFLIXIMAB
     Dosage: 5 MG/KG EVERY 8 WEEKS
     Route: 042
     Dates: start: 20251001
  7. PREDNISONE [Concomitant]
     Active Substance: PREDNISONE
     Dosage: UNK
     Route: 048
  8. CEFIXIME [Concomitant]
     Active Substance: CEFIXIME

REACTIONS (3)
  - Colitis ulcerative [Recovered/Resolved]
  - Hospitalisation [Unknown]
  - Intentional product use issue [Unknown]
